FAERS Safety Report 7991887-4 (Version None)
Quarter: 2011Q4

REPORT INFORMATION
  Report Type: 
  Country: None (occurrence: None)
  Receive Date: 20111219
  Receipt Date: 20111208
  Transmission Date: 20120403
  Serious: Yes (Other)
  Sender: FDA-Public Use
  Company Number: JP-AMGEN-JPNCT2010009878

PATIENT
  Age: 66 Year
  Sex: Male
  Weight: 75 kg

DRUGS (17)
  1. PANITUMUMAB [Suspect]
     Dosage: 6 MG/KG, Q2WK
     Route: 041
     Dates: start: 20110415, end: 20110415
  2. FLUOROURACIL [Concomitant]
     Route: 041
     Dates: start: 20101112, end: 20101203
  3. ANTIHISTAMINES [Concomitant]
     Indication: PROPHYLAXIS
     Route: 065
  4. PANITUMUMAB [Suspect]
     Indication: COLORECTAL CANCER
     Dosage: 6 MG/KG, Q2WK
     Route: 041
     Dates: start: 20101112, end: 20110318
  5. PANITUMUMAB [Suspect]
     Dosage: 375 MG, Q2WK
     Route: 041
     Dates: start: 20110617, end: 20110715
  6. PANITUMUMAB [Suspect]
     Dosage: 470 MG, Q2WK
     Route: 041
     Dates: start: 20111025
  7. FLUOROURACIL [Concomitant]
     Route: 041
     Dates: start: 20101217
  8. LEVOLEUCOVORIN CALCIUM [Concomitant]
     Indication: COLORECTAL CANCER
     Route: 041
     Dates: start: 20101112, end: 20101203
  9. IRINOTECAN HCL [Concomitant]
     Indication: COLORECTAL CANCER
     Route: 041
     Dates: start: 20101217
  10. PANITUMUMAB [Suspect]
     Dosage: 375 MG, Q2WK
     Route: 041
     Dates: start: 20110812, end: 20110906
  11. FLUOROURACIL [Concomitant]
     Indication: COLORECTAL CANCER
     Route: 040
     Dates: start: 20101112, end: 20101203
  12. PANITUMUMAB [Suspect]
     Dosage: 470 MG, Q2WK
     Route: 041
     Dates: start: 20110506, end: 20110520
  13. CORTICOSTEROIDS [Concomitant]
     Indication: PROPHYLAXIS
     Route: 065
  14. OXALIPLATIN [Suspect]
     Indication: COLORECTAL CANCER
     Route: 041
     Dates: start: 20101112, end: 20101203
  15. FLUOROURACIL [Concomitant]
     Route: 040
     Dates: start: 20101217
  16. LEVOLEUCOVORIN CALCIUM [Concomitant]
     Route: 041
     Dates: start: 20101217
  17. LEVOLEUCOVORIN CALCIUM [Concomitant]
     Route: 041
     Dates: start: 20101217

REACTIONS (4)
  - DRUG HYPERSENSITIVITY [None]
  - BLOOD CALCIUM INCREASED [None]
  - IMPLANT SITE NECROSIS [None]
  - IMPLANT SITE ERYTHEMA [None]
